FAERS Safety Report 6993737-1 (Version None)
Quarter: 2010Q3

REPORT INFORMATION
  Report Type: 
  Country: None (occurrence: None)
  Receive Date: 20100917
  Receipt Date: 20070717
  Transmission Date: 20110219
  Serious: Yes (Other)
  Sender: FDA-Public Use
  Company Number: US-ASTRAZENECA-2006UW12152

PATIENT
  Age: 45 Year
  Sex: Female
  Weight: 52.2 kg

DRUGS (15)
  1. SEROQUEL [Suspect]
     Indication: BIPOLAR DISORDER
     Route: 048
     Dates: start: 19990101, end: 20040101
  2. SEROQUEL [Suspect]
     Dosage: 125MG-750MG
     Route: 048
     Dates: start: 20010815
  3. HALDOL [Suspect]
     Dates: start: 20010101
  4. TRILAFON [Concomitant]
  5. ZYPREXA [Concomitant]
  6. PROZAC [Concomitant]
     Indication: BIPOLAR DISORDER
     Dates: start: 19990101
  7. ZOLOFT [Concomitant]
     Indication: BIPOLAR DISORDER
     Dates: start: 19990101
  8. NAPROSYN [Concomitant]
     Indication: PAIN
     Dosage: 500MG, TWO TIMES A DAY AS REQUIRED
     Route: 048
     Dates: start: 20010723
  9. VICODIN [Concomitant]
     Indication: PAIN
     Route: 048
     Dates: start: 20050222
  10. TYLENOL [Concomitant]
     Indication: DISCOMFORT
     Dates: start: 20020714
  11. TYLENOL [Concomitant]
     Indication: PAIN
     Dates: start: 20020714
  12. DEPAKOTE [Concomitant]
     Dosage: 750MG-1500MG
     Dates: start: 20070212
  13. TRAZODONE HCL [Concomitant]
     Dosage: 50MG AS REQUIRED
     Dates: start: 20070212
  14. CIPRO [Concomitant]
     Indication: URINARY TRACT INFECTION
     Dates: start: 20070427
  15. CIPRO [Concomitant]
     Indication: CHRONIC OBSTRUCTIVE PULMONARY DISEASE
     Dates: start: 20070427

REACTIONS (2)
  - PANCREATITIS [None]
  - TARDIVE DYSKINESIA [None]
